FAERS Safety Report 5957793-1 (Version None)
Quarter: 2008Q4

REPORT INFORMATION
  Report Type: 
  Country: None (occurrence: None)
  Receive Date: 20081119
  Receipt Date: 20081110
  Transmission Date: 20090506
  Serious: Yes (Hospitalization)
  Sender: FDA-Public Use
  Company Number: DE-WYE-G02541008

PATIENT
  Age: 40 Year
  Sex: Male

DRUGS (18)
  1. VENLAFAXINE HCL [Suspect]
     Indication: DEPRESSION
     Route: 048
     Dates: start: 20080225, end: 20080227
  2. VENLAFAXINE HCL [Suspect]
     Indication: SOCIAL PHOBIA
  3. DISTRANEURIN [Concomitant]
     Dosage: 4 CAPSULES PER DAY
     Route: 048
     Dates: start: 20080219, end: 20080219
  4. DISTRANEURIN [Concomitant]
     Dosage: 14 CAPSULES PER DAY
     Route: 048
     Dates: start: 20080220, end: 20080221
  5. DISTRANEURIN [Concomitant]
     Dosage: 10 CAPSULES PER DAY
     Route: 048
     Dates: start: 20080222, end: 20080222
  6. DISTRANEURIN [Concomitant]
     Dosage: 8 CAPSULES PER DAY
     Route: 048
     Dates: start: 20080223, end: 20080223
  7. DISTRANEURIN [Concomitant]
     Dosage: 6 CAPSULES PER DAY
     Route: 048
     Dates: start: 20080224, end: 20080224
  8. DISTRANEURIN [Concomitant]
     Dosage: 4 CAPSULES PER DAY
     Route: 048
     Dates: start: 20080225, end: 20080225
  9. DISTRANEURIN [Concomitant]
     Dosage: 2 CAPSULES PER DAY
     Route: 048
     Dates: start: 20080226, end: 20080226
  10. NEUROTRAT FORTE [Concomitant]
     Route: 048
     Dates: start: 20080219, end: 20080219
  11. NEUROTRAT FORTE [Concomitant]
     Route: 048
     Dates: start: 20080120, end: 20080221
  12. NEUROTRAT FORTE [Concomitant]
     Route: 048
     Dates: start: 20080222, end: 20080227
  13. BAYOTENSIN [Suspect]
     Route: 048
     Dates: start: 20080221, end: 20080221
  14. BAYOTENSIN [Suspect]
     Route: 048
     Dates: start: 20080225, end: 20080225
  15. BAYOTENSIN [Suspect]
     Route: 048
     Dates: start: 20080228, end: 20080228
  16. CATAPRESAN [Suspect]
     Route: 048
     Dates: start: 20080210, end: 20080220
  17. CATAPRESAN [Suspect]
     Route: 048
     Dates: start: 20080223, end: 20080223
  18. CATAPRESAN [Suspect]
     Route: 048
     Dates: start: 20080226, end: 20080226

REACTIONS (4)
  - ANAPHYLACTIC SHOCK [None]
  - CHILLS [None]
  - DERMATITIS ALLERGIC [None]
  - JOINT SWELLING [None]
